FAERS Safety Report 6472100-6 (Version None)
Quarter: 2009Q4

REPORT INFORMATION
  Report Type: 
  Country: None (occurrence: None)
  Receive Date: 20091203
  Receipt Date: 20080804
  Transmission Date: 20100525
  Serious: Yes (Hospitalization, Other)
  Sender: FDA-Public Use
  Company Number: JP-ELI_LILLY_AND_COMPANY-JP200804002918

PATIENT
  Sex: Male
  Weight: 65 kg

DRUGS (20)
  1. PEMETREXED [Suspect]
     Indication: PLEURAL MESOTHELIOMA MALIGNANT
     Dosage: 840 MG, OTHER
     Route: 042
     Dates: start: 20070904, end: 20071018
  2. PEMETREXED [Suspect]
     Dosage: 650 MG, OTHER
     Route: 042
     Dates: start: 20071108, end: 20080116
  3. PEMETREXED [Suspect]
     Dosage: 500 MG, OTHER
     Route: 042
     Dates: start: 20080221
  4. CISPLATIN [Suspect]
     Indication: PLEURAL MESOTHELIOMA MALIGNANT
     Dosage: 60 MG, OTHER
     Route: 042
     Dates: start: 20070904, end: 20071018
  5. CISPLATIN [Suspect]
     Dosage: 50 MG, OTHER
     Route: 042
     Dates: start: 20071108, end: 20071213
  6. CISPLATIN [Suspect]
     Dosage: 25 MG, OTHER
     Route: 042
     Dates: start: 20080116
  7. FOLIAMIN [Concomitant]
     Dosage: 0.5 MG, DAILY (1/D)
     Route: 048
     Dates: start: 20070827
  8. METHYCOBAL [Concomitant]
     Dosage: 1 MG, UNKNOWN
     Route: 030
     Dates: start: 20070827, end: 20080119
  9. OMEPRAL [Concomitant]
     Indication: REFLUX OESOPHAGITIS
     Dosage: 20 MG, DAILY (1/D)
     Route: 048
  10. ZYLORIC [Concomitant]
     Indication: HYPERURICAEMIA
     Dosage: 200 MG, DAILY (1/D)
     Route: 048
  11. PHENOBARBITAL TAB [Concomitant]
     Indication: PROPHYLAXIS
     Dosage: 120 MG, DAILY (1/D)
     Route: 048
  12. CLARITH [Concomitant]
     Indication: BRONCHITIS CHRONIC
     Dosage: 400 MG, DAILY (1/D)
     Route: 048
  13. DEPAS [Concomitant]
     Indication: ANXIETY DISORDER
     Dosage: 1.5 MG, DAILY (1/D)
     Route: 048
  14. PURSENNID [Concomitant]
     Indication: CONSTIPATION
     Dosage: 24 MG, DAILY (1/D)
     Route: 048
  15. TRYPTANOL [Concomitant]
     Indication: CANCER PAIN
     Dosage: 30 MG, DAILY (1/D)
     Route: 048
     Dates: end: 20080124
  16. MUCODYNE [Concomitant]
     Indication: BRONCHITIS CHRONIC
     Dosage: 500 MG, DAILY (1/D)
     Route: 048
     Dates: start: 20070207
  17. LENDORMIN [Concomitant]
     Indication: INSOMNIA
     Dosage: 0.25 MG, DAILY (1/D)
     Route: 048
     Dates: start: 20071114
  18. DUROTEP [Concomitant]
     Indication: CANCER PAIN
     Dosage: 2.5 MG, DAILY (1/D)
     Route: 061
     Dates: start: 20071122
  19. LOXONIN [Concomitant]
     Indication: CANCER PAIN
     Dosage: 180 MG, DAILY (1/D)
     Route: 048
     Dates: start: 20071129
  20. CODEINE PHOSPHATE [Concomitant]
     Indication: BRONCHITIS CHRONIC
     Dosage: 20 MG, DAILY (1/D)
     Route: 048
     Dates: start: 20071227

REACTIONS (5)
  - ABDOMINAL PAIN UPPER [None]
  - ANAEMIA [None]
  - NEUTROPHIL COUNT DECREASED [None]
  - PNEUMONIA [None]
  - WHITE BLOOD CELL COUNT DECREASED [None]
